FAERS Safety Report 8989102 (Version 2)
Quarter: 2012Q4

REPORT INFORMATION
  Report Type: 
  Country: JP (occurrence: JP)
  Receive Date: 20121227
  Receipt Date: 20121231
  Transmission Date: 20130627
  Serious: Yes (Death)
  Sender: FDA-Public Use
  Company Number: JP-B.I. PHARMACEUTICALS,INC./RIDGEFIELD-2012-BI-04333NB

PATIENT
  Age: 70 Year

DRUGS (3)
  1. MICOMBI COMBINATION [Suspect]
     Route: 048
     Dates: start: 20120612, end: 20120619
  2. ALLELOCK [Concomitant]
     Route: 048
     Dates: start: 20120612, end: 20120619
  3. METHADERM [Concomitant]
     Dates: start: 20120612, end: 20120619

REACTIONS (1)
  - Hepatitis fulminant [Fatal]
